FAERS Safety Report 7691238-9 (Version None)
Quarter: 2011Q3

REPORT INFORMATION
  Report Type: 
  Country: None (occurrence: None)
  Receive Date: 20110818
  Receipt Date: 20110809
  Transmission Date: 20111222
  Serious: Yes (Other)
  Sender: FDA-Public Use
  Company Number: FR-ASTRAZENECA-2011SE47670

PATIENT
  Age: 49 Year
  Sex: Male

DRUGS (3)
  1. CELOCURINE [Suspect]
     Route: 042
     Dates: start: 20100829
  2. DIPRIVAN [Suspect]
     Route: 042
     Dates: start: 20100829
  3. SUFENTA PRESERVATIVE FREE [Suspect]
     Route: 042
     Dates: start: 20100829

REACTIONS (2)
  - ANAPHYLACTIC REACTION [None]
  - SKIN TEST NEGATIVE [None]
